FAERS Safety Report 5935778-9 (Version None)
Quarter: 2008Q4

REPORT INFORMATION
  Report Type: 
  Country: None (occurrence: None)
  Receive Date: 20081030
  Receipt Date: 20081022
  Transmission Date: 20090506
  Serious: Yes (Hospitalization)
  Sender: FDA-Public Use
  Company Number: IT-WATSON-2008-06325

PATIENT
  Age: 64 Year
  Sex: Male

DRUGS (2)
  1. ERYTHROMYCIN  (WATSON LABORATORIES) [Suspect]
     Indication: INFECTION
     Dosage: 1 G, BID
     Route: 048
  2. METHYLPREDNISOLONE ACETATE [Suspect]
     Indication: ANTIINFLAMMATORY THERAPY
     Dosage: 16 MG, BID
     Route: 048

REACTIONS (2)
  - HALLUCINATION [None]
  - TREMOR [None]
